FAERS Safety Report 22360335 (Version 1)
Quarter: 2023Q2

REPORT INFORMATION
  Report Type: Spontaneous
  Country: US (occurrence: US)
  Receive Date: 20230524
  Receipt Date: 20230524
  Transmission Date: 20230722
  Serious: No
  Sender: FDA-Public Use
  Company Number: US-SA-SAC20230523000535

PATIENT
  Age: 38 Year
  Sex: Male
  Weight: 84.82 kg

DRUGS (1)
  1. DUPIXENT [Suspect]
     Active Substance: DUPILUMAB
     Indication: Dermatitis atopic
     Dosage: 600 MG
     Route: 058
     Dates: start: 20230512

REACTIONS (2)
  - Sleep disorder [Recovering/Resolving]
  - Condition aggravated [Recovering/Resolving]

NARRATIVE: CASE EVENT DATE: 20230518
